FAERS Safety Report 24782493 (Version 3)
Quarter: 2025Q3

REPORT INFORMATION
  Report Type: Spontaneous
  Country: EU (occurrence: EU)
  Receive Date: 20241227
  Receipt Date: 20250721
  Transmission Date: 20251020
  Serious: Yes (Death, Life-Threatening, Other)
  Sender: BRISTOL-MYERS SQUIBB COMPANY
  Company Number: EU-BRISTOL-MYERS SQUIBB COMPANY-2024-199257

PATIENT
  Age: 92 Year
  Sex: Female

DRUGS (2)
  1. ELIQUIS [Suspect]
     Active Substance: APIXABAN
     Indication: Atrial fibrillation
     Dates: start: 20241104
  2. ELIQUIS [Suspect]
     Active Substance: APIXABAN
     Indication: Pulmonary embolism

REACTIONS (3)
  - Asphyxia [Fatal]
  - Visual impairment [Unknown]
  - Arthritis [Unknown]

NARRATIVE: CASE EVENT DATE: 20241220
